FAERS Safety Report 12802457 (Version 1)
Quarter: 2016Q4

REPORT INFORMATION
  Report Type: Report from Study
  Country: US (occurrence: US)
  Receive Date: 20161003
  Receipt Date: 20161003
  Transmission Date: 20170207
  Serious: Yes (Other)
  Sender: FDA-Public Use
  Company Number: US-ROCHE-1478749

PATIENT
  Sex: Female
  Weight: 90.9 kg

DRUGS (11)
  1. BEVACIZUMAB [Suspect]
     Active Substance: BEVACIZUMAB
     Dosage: 02/MAY/2014, 06/JUN/2014, 18/JUL/2014, 07/AUG/2014, 27/AUG/2014, 17/SEP/2014, 08/OCT/2014, 29/OCT/20
     Route: 042
  2. VELIPARIB [Suspect]
     Active Substance: VELIPARIB
     Dosage: 18/JUL/2014
     Route: 048
  3. BEVACIZUMAB [Suspect]
     Active Substance: BEVACIZUMAB
     Dosage: 03/APR/2014
     Route: 042
     Dates: start: 20140310
  4. VELIPARIB [Suspect]
     Active Substance: VELIPARIB
     Route: 048
     Dates: start: 20140310
  5. VELIPARIB [Suspect]
     Active Substance: VELIPARIB
     Dosage: 02/MAY/2014
     Route: 048
  6. VELIPARIB [Suspect]
     Active Substance: VELIPARIB
     Indication: OVARIAN EPITHELIAL CANCER
     Dosage: ON DAYS 1-21
     Route: 048
     Dates: start: 20140213
  7. VELIPARIB [Suspect]
     Active Substance: VELIPARIB
     Dosage: 03/APR/2014
     Route: 048
  8. VELIPARIB [Suspect]
     Active Substance: VELIPARIB
     Dosage: 06/JUN/2014
     Route: 048
  9. PACLITAXEL. [Suspect]
     Active Substance: PACLITAXEL
     Indication: OVARIAN EPITHELIAL CANCER
     Dosage: OVER 3 HRS ON DAY 1, MOST RECENT DOSE WAS 02/MAY/2014.
     Route: 042
     Dates: start: 20140213
  10. CARBOPLATIN. [Suspect]
     Active Substance: CARBOPLATIN
     Indication: OVARIAN EPITHELIAL CANCER
     Dosage: AUC = 6 IV OVER 30 MIN ON DAY 1, MOST RECENT DOSE WAS 02/MAY/2014.
     Route: 042
     Dates: start: 20140213
  11. BEVACIZUMAB [Suspect]
     Active Substance: BEVACIZUMAB
     Indication: OVARIAN EPITHELIAL CANCER
     Dosage: OVER 30-90 MINS ON DAY1
     Route: 042
     Dates: start: 20140213

REACTIONS (5)
  - Anaemia [Unknown]
  - White blood cell count decreased [Unknown]
  - Neutrophil count decreased [Unknown]
  - Platelet count decreased [Unknown]
  - Platelet count decreased [Not Recovered/Not Resolved]
